APPROVED DRUG PRODUCT: CHLOROFAIR
Active Ingredient: CHLORAMPHENICOL
Strength: 1%
Dosage Form/Route: OINTMENT;OPHTHALMIC
Application: A062439 | Product #001
Applicant: PHARMAFAIR INC
Approved: Apr 21, 1983 | RLD: No | RS: No | Type: DISCN